FAERS Safety Report 11272778 (Version 1)
Quarter: 2015Q3

REPORT INFORMATION
  Report Type: Spontaneous
  Country: US (occurrence: None)
  Receive Date: 20150714
  Receipt Date: 20150714
  Transmission Date: 20151125
  Serious: No
  Sender: FDA-Public Use
  Company Number: None

PATIENT
  Age: 62 Year
  Sex: Male

DRUGS (7)
  1. SIMVASTATIN. [Concomitant]
     Active Substance: SIMVASTATIN
  2. LISINOPRIL. [Concomitant]
     Active Substance: LISINOPRIL
  3. FARSEGA [Concomitant]
  4. XEOMIN [Suspect]
     Active Substance: INCOBOTULINUMTOXINA
     Indication: SKIN WRINKLING
     Dosage: 3 INJEC OVER 3 WKS?GIVEN INTO/UNDER THE SKIN
  5. METFORMIN [Concomitant]
     Active Substance: METFORMIN HYDROCHLORIDE
  6. GLYBURIDE. [Concomitant]
     Active Substance: GLYBURIDE
  7. JUVEDERM [Suspect]
     Active Substance: HYALURONIC ACID
     Indication: SKIN WRINKLING
     Dosage: 3 INJEC OVER 3 WKS?GIVEN INTO/UNDER THE SKIN

REACTIONS (10)
  - Visual impairment [None]
  - Erectile dysfunction [None]
  - Musculoskeletal disorder [None]
  - Stress [None]
  - Pyrexia [None]
  - Dry eye [None]
  - Ageusia [None]
  - Diarrhoea [None]
  - Nasal dryness [None]
  - Lacrimation decreased [None]

NARRATIVE: CASE EVENT DATE: 20150522
